FAERS Safety Report 16756244 (Version 2)
Quarter: 2019Q3

REPORT INFORMATION
  Report Type: Report from Study
  Country: GB (occurrence: GB)
  Receive Date: 20190829
  Receipt Date: 20190911
  Transmission Date: 20191005
  Serious: Yes (Other)
  Sender: FDA-Public Use
  Company Number: GB-VERTEX PHARMACEUTICALS-2019-008016

PATIENT
  Age: 23 Year
  Sex: Female
  Weight: 46 kg

DRUGS (26)
  1. IMIPENEM [Suspect]
     Active Substance: IMIPENEM
     Indication: INFECTIVE PULMONARY EXACERBATION OF CYSTIC FIBROSIS
     Dosage: UNK
     Route: 042
  2. AZITHROMYCIN ANHYDROUS. [Concomitant]
     Active Substance: AZITHROMYCIN ANHYDROUS
     Indication: CYSTIC FIBROSIS LUNG
     Dosage: 250 MG, QD
     Route: 048
  3. AZTREONAM LYSINE [Concomitant]
     Active Substance: AZTREONAM LYSINE
     Indication: BACTERIAL DISEASE CARRIER
     Dosage: 75 MG, TID
     Route: 055
  4. HYDROXYCHLOROQUINE [Concomitant]
     Active Substance: HYDROXYCHLOROQUINE
     Dosage: 200 MG, 1 DOSAGE FORM, QD
  5. TRANEXAMIC ACID. [Concomitant]
     Active Substance: TRANEXAMIC ACID
     Dosage: 500 MG, 2 DOSAGE FORMS, QID
  6. COTRIMOXAZOLE [Suspect]
     Active Substance: SULFAMETHOXAZOLE\TRIMETHOPRIM
     Indication: INFECTIVE PULMONARY EXACERBATION OF CYSTIC FIBROSIS
  7. CREON [Concomitant]
     Active Substance: PANCRELIPASE AMYLASE\PANCRELIPASE LIPASE\PANCRELIPASE PROTEASE
  8. KALYDECO [Suspect]
     Active Substance: IVACAFTOR
     Indication: CYSTIC FIBROSIS
     Dosage: 150 MG, PM
     Route: 048
     Dates: start: 20190403, end: 20190725
  9. TOBRAMYCIN. [Suspect]
     Active Substance: TOBRAMYCIN
     Indication: INFECTIVE PULMONARY EXACERBATION OF CYSTIC FIBROSIS
     Dosage: 240 MG, QD
     Route: 042
     Dates: start: 20190327
  10. MEROPENEM. [Suspect]
     Active Substance: MEROPENEM
     Indication: INFECTIVE PULMONARY EXACERBATION OF CYSTIC FIBROSIS
     Dosage: 2 GRAM, TID
     Route: 042
  11. TAZOBACTAM [Suspect]
     Active Substance: TAZOBACTAM
     Dosage: UNK
     Route: 042
     Dates: start: 20190508
  12. MINOCYCLINE [Concomitant]
     Active Substance: MINOCYCLINE HYDROCHLORIDE
     Dosage: 100 MG, 1 DOSAGE FORM, QD
  13. NOVORAPID [Concomitant]
     Active Substance: INSULIN ASPART
     Dosage: 10 MILLILITER, 1 VIAL
  14. SULFASALAZINE. [Concomitant]
     Active Substance: SULFASALAZINE
     Dosage: 500 MG, 3 DOSAGE FORMS, QAM
  15. COLECALCIFEROL BENFEROL [Concomitant]
     Indication: PANCREATIC FAILURE
     Dosage: 40000 IU INTERNATIONAL UNIT(S)
     Route: 048
     Dates: start: 2016
  16. FERROUS FUMARATE [Concomitant]
     Active Substance: FERROUS FUMARATE
     Dosage: 210 MG
  17. SODIUM CHLORIDE. [Concomitant]
     Active Substance: SODIUM CHLORIDE
     Dosage: 600 MG, 2 DOSAGE FORM, TID
  18. TAZOCIN [Suspect]
     Active Substance: PIPERACILLIN SODIUM\TAZOBACTAM SODIUM
     Indication: INFECTIVE PULMONARY EXACERBATION OF CYSTIC FIBROSIS
     Dosage: 4.5 GRAM, QID
     Route: 042
     Dates: start: 20190327, end: 20190403
  19. CEFTOLOZANE [Suspect]
     Active Substance: CEFTOLOZANE
     Dosage: UNK
     Route: 042
     Dates: start: 20190508
  20. COLECALCIFEROL BENFEROL [Concomitant]
     Dosage: 20000 IU INTERNATIONAL UNIT(S), 2 DOSAGE FORMS ONCE A WEEK
  21. CREON [Concomitant]
     Active Substance: PANCRELIPASE AMYLASE\PANCRELIPASE LIPASE\PANCRELIPASE PROTEASE
  22. DORNASE ALFA. [Concomitant]
     Active Substance: DORNASE ALFA
     Dosage: UNK
     Route: 055
  23. OMEPRAZOLE. [Concomitant]
     Active Substance: OMEPRAZOLE
     Dosage: 20 MG
  24. PARAVIT [Concomitant]
     Active Substance: ACETAMINOPHEN\ASCORBIC ACID
  25. SYMKEVI [Suspect]
     Active Substance: IVACAFTOR\TEZACAFTOR
     Indication: CYSTIC FIBROSIS
     Dosage: 100MG TEZACAFTOR/150MG IVACAFTOR AM
     Route: 048
     Dates: start: 20190403, end: 20190725
  26. URSODEOXYCHOLIC ACID [Concomitant]
     Active Substance: URSODIOL
     Dosage: 250 MG 2 DOSAGE FORM, QAM

REACTIONS (5)
  - Blood alkaline phosphatase increased [Recovering/Resolving]
  - Vitiligo [Unknown]
  - Hepatic enzyme increased [Recovering/Resolving]
  - Blood bilirubin increased [Recovering/Resolving]
  - Gamma-glutamyltransferase increased [Recovering/Resolving]

NARRATIVE: CASE EVENT DATE: 2019
